FAERS Safety Report 8821763 (Version 1)
Quarter: 2012Q4

REPORT INFORMATION
  Report Type: 
  Country: DK (occurrence: DK)
  Receive Date: 20121002
  Receipt Date: 20121002
  Transmission Date: 20130627
  Serious: Yes (Other)
  Sender: FDA-Public Use
  Company Number: DK-ARROW-2012-16751

PATIENT
  Sex: Female

DRUGS (2)
  1. ALENDRONATE SODIUM- (UNKNOWN) [Suspect]
     Indication: OSTEOPOROSIS
     Dosage: UNK
     Route: 065
     Dates: start: 2006, end: 20110124
  2. FOSAMAX [Suspect]
     Indication: OSTEOPOROSIS
     Route: 065

REACTIONS (5)
  - Osteonecrosis of jaw [Unknown]
  - Jaw fracture [Recovering/Resolving]
  - Pain [Recovered/Resolved]
  - Calcinosis [Unknown]
  - Fibroma [Unknown]
